FAERS Safety Report 18582579 (Version 2)
Quarter: 2020Q4

REPORT INFORMATION
  Report Type: Spontaneous
  Country: TR (occurrence: TR)
  Receive Date: 20201205
  Receipt Date: 20201215
  Transmission Date: 20210114
  Serious: Yes (Other)
  Sender: FDA-Public Use
  Company Number: TR-ACCORD-210071

PATIENT
  Sex: Male
  Weight: 73 kg

DRUGS (6)
  1. BENSERAZIDE/LEVODOPA [Concomitant]
     Active Substance: BENSERAZIDE\LEVODOPA
     Indication: PARKINSON^S DISEASE
     Dosage: 418.75 MG, 312.5 MG FROM 2015
     Route: 048
  2. CARBIDOPA/ENTACAPONE/LEVODOPA [Concomitant]
     Active Substance: CARBIDOPA\ENTACAPONE\LEVODOPA
     Indication: PARKINSON^S DISEASE
     Dosage: 250 MG, STRENGTH: 12.5 MG/200 MG/50 MG
     Route: 048
     Dates: start: 2012
  3. RASAGILINE/RASAGILINE MESYLATE [Concomitant]
     Active Substance: RASAGILINE MESYLATE
     Indication: PARKINSON^S DISEASE
     Route: 048
  4. CLOZAPINE. [Suspect]
     Active Substance: CLOZAPINE
     Indication: PARKINSON^S DISEASE
     Route: 048
     Dates: start: 20160301, end: 20160314
  5. QUETIAPINE. [Suspect]
     Active Substance: QUETIAPINE
     Indication: PARKINSON^S DISEASE
     Dosage: 25 MG FROM 03-FEB-201 TO 10-FEB-2016
     Route: 048
     Dates: start: 20160210, end: 20160321
  6. AMANTADINE. [Concomitant]
     Active Substance: AMANTADINE HYDROCHLORIDE
     Indication: PARKINSON^S DISEASE
     Dosage: 150 MG FROM 2012
     Route: 048

REACTIONS (5)
  - Motor dysfunction [Recovering/Resolving]
  - Dysphagia [Recovering/Resolving]
  - Drooling [Recovering/Resolving]
  - Bradykinesia [Recovering/Resolving]
  - Condition aggravated [Recovering/Resolving]

NARRATIVE: CASE EVENT DATE: 20160215
